FAERS Safety Report 11362968 (Version 1)
Quarter: 2015Q3

REPORT INFORMATION
  Report Type: Spontaneous
  Country: US (occurrence: US)
  Receive Date: 20150810
  Receipt Date: 20150810
  Transmission Date: 20151125
  Serious: No
  Sender: FDA-Public Use
  Company Number: US-AMEDRA PHARMACEUTICALS LLC-2014AMD00110

PATIENT
  Age: 63 Year
  Sex: Female
  Weight: 72.56 kg

DRUGS (7)
  1. CLOVE. [Concomitant]
     Active Substance: CLOVE
  2. ALBENZA [Suspect]
     Active Substance: ALBENDAZOLE
     Dosage: 200 MG, 2X/DAY
     Dates: start: 20141028
  3. GARLIC. [Concomitant]
     Active Substance: GARLIC
  4. ALBENZA [Suspect]
     Active Substance: ALBENDAZOLE
     Indication: PARASITIC GASTROENTERITIS
     Dosage: 400 MG, 2X/DAY
     Route: 048
     Dates: start: 20140604
  5. ALBENZA [Suspect]
     Active Substance: ALBENDAZOLE
     Dosage: 400 MG, ONCE
     Dates: start: 20141008, end: 20141008
  6. PUMPKIN SEEDS [Concomitant]
  7. ALBENZA [Suspect]
     Active Substance: ALBENDAZOLE
     Dosage: 600 MG, 2X/DAY
     Dates: start: 201406, end: 201406

REACTIONS (1)
  - Incorrect drug administration duration [Not Recovered/Not Resolved]

NARRATIVE: CASE EVENT DATE: 201406
